FAERS Safety Report 6446774-X (Version None)
Quarter: 2009Q4

REPORT INFORMATION
  Report Type: 
  Country: None (occurrence: None)
  Receive Date: 20091119
  Receipt Date: 20091109
  Transmission Date: 20100525
  Serious: Yes (Hospitalization)
  Sender: FDA-Public Use
  Company Number: PHHY2009GB37254

PATIENT
  Sex: Female

DRUGS (8)
  1. CLOZARIL [Suspect]
     Indication: SCHIZOPHRENIA
     Dosage: 300 MG/DAY
     Dates: start: 20090615
  2. CLOZARIL [Suspect]
     Dosage: UNK
     Dates: start: 20090829
  3. BETA BLOCKING AGENTS [Suspect]
  4. SELECTIVE SEROTONIN REUPTAKE INHIBITORS [Suspect]
  5. MIRTAZAPINE [Concomitant]
     Indication: DEPRESSION
     Dosage: UNK
     Route: 048
     Dates: start: 20080401
  6. PAROXETINE HCL [Concomitant]
     Indication: DEPRESSION
     Dosage: 30 MG/DAY
     Route: 048
     Dates: start: 20080401
  7. TEMAZEPAM [Concomitant]
     Indication: INSOMNIA
     Dosage: 10 MG/DAY
     Route: 048
     Dates: start: 20080401
  8. SUBUTEX [Concomitant]
     Indication: DRUG DEPENDENCE
     Dosage: UNK
     Route: 048
     Dates: start: 20080401

REACTIONS (1)
  - OVERDOSE [None]
